FAERS Safety Report 8906148 (Version 2)
Quarter: 2012Q4

REPORT INFORMATION
  Report Type: Spontaneous
  Country: DE (occurrence: None)
  Receive Date: 20121026
  Receipt Date: 20121105
  Transmission Date: 20130627
  Serious: Yes (Death, Hospitalization)
  Sender: FDA-Public Use
  Company Number: 2012033710

PATIENT
  Age: 74 Year
  Sex: Female

DRUGS (15)
  1. PRIVIGEN [Suspect]
     Indication: MYELOMA
     Dosage: 10 g, infusion rate: minumum 23 m:/min, maximum 150 mL/ min
     Route: 042
     Dates: start: 20120830, end: 20120830
  2. PRIVIGEN [Suspect]
     Indication: SECONDARY ACQUIRED HYPOGAMMAGLOBULINEMIA
     Dosage: 10 g, infusion rate: minumum 23 m:/min, maximum 150 mL/ min
     Route: 042
     Dates: start: 20120830, end: 20120830
  3. PRIVIGEN [Suspect]
     Indication: RECURRENT INFECTION
     Dosage: 10 g, infusion rate: minumum 23 m:/min, maximum 150 mL/ min
     Route: 042
     Dates: start: 20120830, end: 20120830
  4. SPIRONOLACTON (SPIRONOLACTONE) [Concomitant]
  5. TORASEMIDE (TORAZEMIDE) [Concomitant]
  6. RAMIPRIL (RAMIPRIL) [Concomitant]
  7. METOPROLOL (METOPROLOL) [Concomitant]
  8. PANTOPRAZOLE (PANTOPRAZOLE) [Concomitant]
  9. ALENDRONIC ACID (ALENDRONIC ACID) [Concomitant]
  10. KALINOR [Concomitant]
  11. VALORON N [Concomitant]
  12. TEPILTA [Concomitant]
  13. CALCITONIN (CALCITONIN) [Concomitant]
  14. NOVALGIN [Concomitant]
  15. ZOMETA (ZOLEDRONIC ACID) [Concomitant]

REACTIONS (5)
  - General physical health deterioration [None]
  - Disease progression [None]
  - Plasma cell myeloma [None]
  - Secondary immunodeficiency [None]
  - Infection [None]
